FAERS Safety Report 5359755-4 (Version None)
Quarter: 2007Q2

REPORT INFORMATION
  Report Type: 
  Country: None (occurrence: None)
  Receive Date: 20070615
  Receipt Date: 20070605
  Transmission Date: 20071010
  Serious: Yes (Other)
  Sender: FDA-Public Use
  Company Number: US-PFIZER INC-2007048187

PATIENT
  Sex: Male
  Weight: 102.3 kg

DRUGS (4)
  1. CHANTIX [Suspect]
     Indication: SMOKING CESSATION THERAPY
  2. GABAPENTIN [Suspect]
     Indication: PAIN
  3. IBUPROFEN [Suspect]
     Indication: PAIN
  4. FLEXERIL [Suspect]
     Indication: PAIN

REACTIONS (1)
  - ARTHRALGIA [None]
